FAERS Safety Report 9991671 (Version 1)
Quarter: 2014Q1

REPORT INFORMATION
  Report Type: Spontaneous
  Country: DE (occurrence: DE)
  Receive Date: 20140310
  Receipt Date: 20140310
  Transmission Date: 20141002
  Serious: Yes (Other)
  Sender: FDA-Public Use
  Company Number: DE-JNJFOC-20140218112

PATIENT
  Sex: Female

DRUGS (2)
  1. DOXORUBICIN [Suspect]
     Indication: OVARIAN CANCER RECURRENT
     Route: 042
  2. CISPLATIN [Suspect]
     Indication: OVARIAN CANCER RECURRENT
     Route: 065

REACTIONS (3)
  - Disease progression [Unknown]
  - C-reactive protein increased [Unknown]
  - Wrong technique in drug usage process [Unknown]
